FAERS Safety Report 7738487-9 (Version None)
Quarter: 2011Q3

REPORT INFORMATION
  Report Type: 
  Country: None (occurrence: None)
  Receive Date: 20110906
  Receipt Date: 20110817
  Transmission Date: 20111222
  Serious: Yes (Death)
  Sender: FDA-Public Use
  Company Number: FK201101754

PATIENT
  Age: 76 Year
  Sex: Female

DRUGS (2)
  1. CLADRIBINE [Suspect]
     Indication: EXTRANODAL MARGINAL ZONE B-CELL LYMPHOMA (MALT TYPE)
     Dosage: 0.09 MG/KG, 2-6 DAYS
  2. RITUXIMAB (RITUXIMAB) (RITUXIMAB) [Suspect]
     Indication: EXTRANODAL MARGINAL ZONE B-CELL LYMPHOMA (MALT TYPE)
     Dosage: 375 MG/M2, DAY 1

REACTIONS (6)
  - BONE MARROW FAILURE [None]
  - LUNG NEOPLASM [None]
  - METASTASES TO LIVER [None]
  - HEPATIC NEOPLASM [None]
  - NON-SMALL CELL LUNG CANCER [None]
  - DISSEMINATED INTRAVASCULAR COAGULATION [None]
